FAERS Safety Report 4422791-6 (Version None)
Quarter: 2004Q3

REPORT INFORMATION
  Report Type: 
  Country: None (occurrence: None)
  Receive Date: 20040719
  Receipt Date: 20031122
  Transmission Date: 20050211
  Serious: Yes (Hospitalization)
  Sender: FDA-Public Use
  Company Number: M03-INT-120

PATIENT
  Age: 84 Year
  Sex: Female
  Weight: 62 kg

DRUGS (12)
  1. INTEGRILIN [Suspect]
     Indication: ACUTE CORONARY SYNDROME
     Dosage: 180/2  QD, INTRAVENOUS
     Route: 042
     Dates: start: 20031115, end: 20031118
  2. PLAVIX [Concomitant]
  3. ACETYLSALICYLIC ACID [Concomitant]
  4. HEPARIN [Concomitant]
  5. MONTELUKAST [Concomitant]
  6. PANTOPRAZOLE [Concomitant]
  7. BUDESONIDE [Concomitant]
  8. LISINOPRIL [Concomitant]
  9. SALMETEROL [Concomitant]
  10. PENICILLIN [Concomitant]
  11. IPRATROPIUM BROMIDE [Concomitant]
  12. METOPROLOL [Concomitant]

REACTIONS (2)
  - HAEMATOCRIT DECREASED [None]
  - HAEMOGLOBIN DECREASED [None]
